FAERS Safety Report 11122214 (Version 1)
Quarter: 2015Q2

REPORT INFORMATION
  Report Type: Spontaneous
  Country: FR (occurrence: FR)
  Receive Date: 20150519
  Receipt Date: 20150519
  Transmission Date: 20150821
  Serious: Yes (Life-Threatening, Hospitalization)
  Sender: FDA-Public Use
  Company Number: FR-PFIZER INC-2015132135

PATIENT
  Age: 20 Year
  Sex: Female

DRUGS (11)
  1. RIVOTRIL [Suspect]
     Active Substance: CLONAZEPAM
     Dosage: UNK
     Route: 042
     Dates: start: 201502
  2. URBANYL [Concomitant]
     Active Substance: CLOBAZAM
     Dosage: 0.5 DF OF 10 MG IN THE MORNING, 0.5 DF OF 10 MG AT NOON, 1 DF OF 10 MG IN THE EVENING
     Dates: start: 201405
  3. TRIPTAN [Concomitant]
     Indication: MIGRAINE
     Dosage: UNK
  4. PRODILANTIN [Suspect]
     Active Substance: FOSPHENYTOIN SODIUM
     Dosage: 900 MG OF EQUIVALENT TO PHENYTOIN SODIUM
     Route: 041
     Dates: start: 20150331, end: 20150331
  5. LAMICTAL [Concomitant]
     Active Substance: LAMOTRIGINE
     Dosage: 200 MG, 1X/DAY IN THE EVENING
  6. PRODILANTIN [Suspect]
     Active Substance: FOSPHENYTOIN SODIUM
     Dosage: 900 MG EQUIVALENT TO PHENYTOIN SODIUM
     Route: 041
     Dates: start: 20150209, end: 20150209
  7. RIVOTRIL [Suspect]
     Active Substance: CLONAZEPAM
     Dosage: 1 AMPOULE OF 1 MG, SINGLE
     Route: 042
     Dates: start: 20150331, end: 20150331
  8. RIVOTRIL [Suspect]
     Active Substance: CLONAZEPAM
     Dosage: UNK
     Route: 042
     Dates: start: 20150401, end: 20150402
  9. PRODILANTIN [Suspect]
     Active Substance: FOSPHENYTOIN SODIUM
     Indication: GENERALISED TONIC-CLONIC SEIZURE
     Dosage: UNK
     Route: 041
     Dates: start: 201501
  10. RIVOTRIL [Suspect]
     Active Substance: CLONAZEPAM
     Indication: GENERALISED TONIC-CLONIC SEIZURE
     Dosage: UNK
     Route: 042
     Dates: start: 201501
  11. GARDENAL [Concomitant]
     Active Substance: PHENOBARBITAL
     Indication: GENERALISED TONIC-CLONIC SEIZURE
     Dosage: UNK
     Dates: start: 20150401, end: 20150402

REACTIONS (3)
  - Bradycardia [Recovered/Resolved]
  - Circulatory collapse [Recovered/Resolved]
  - Hypotension [Recovered/Resolved]

NARRATIVE: CASE EVENT DATE: 20150331
